FAERS Safety Report 10695025 (Version 6)
Quarter: 2015Q2

REPORT INFORMATION
  Report Type: Spontaneous
  Country: FR (occurrence: FR)
  Receive Date: 20150107
  Receipt Date: 20150608
  Transmission Date: 20150821
  Serious: Yes (Other)
  Sender: FDA-Public Use
  Company Number: FR-TEVA-532751ISR

PATIENT
  Age: 57 Year
  Sex: Female
  Weight: 60 kg

DRUGS (9)
  1. LEVOTHYROX [Concomitant]
     Active Substance: LEVOTHYROXINE
     Indication: HYPOTHYROIDISM
     Dosage: 75 MICROGRAM DAILY; IN THE MORNING
     Route: 048
     Dates: start: 19981101
  2. VENTOLINE [Concomitant]
     Active Substance: ALBUTEROL
     Indication: ASTHMA
     Route: 065
  3. SERESTA 10 MG [Concomitant]
     Dosage: 10 MILLIGRAM DAILY; IN THE MORNING
  4. COPAXONE [Suspect]
     Active Substance: GLATIRAMER ACETATE
     Indication: MULTIPLE SCLEROSIS
     Dosage: COPAXONE 20MG/ML WITH THE AUTOJECT AT A DEPTH OF 6MM
     Route: 058
     Dates: start: 20141008, end: 201504
  5. SERESTA 50MG [Concomitant]
     Indication: DEPRESSION
     Dosage: 50 MILLIGRAM DAILY; IN THE EVENING
     Route: 048
     Dates: start: 20131215
  6. ATENOLOL. [Concomitant]
     Active Substance: ATENOLOL
     Indication: HYPERTENSION
     Dosage: 75 MILLIGRAM DAILY; IN THE MORNING
     Route: 048
     Dates: start: 20110502
  7. NISIS [Concomitant]
     Active Substance: VALSARTAN
     Indication: HYPERTENSION
     Dosage: 80 MILLIGRAM DAILY; IN THE MORNING
     Route: 048
     Dates: start: 20110402
  8. EFFEXOR LP [Concomitant]
     Active Substance: VENLAFAXINE HYDROCHLORIDE
     Indication: DEPRESSION
     Dosage: 75 MILLIGRAM DAILY; AT BEDTIME
     Route: 048
     Dates: start: 20131215
  9. ZOLPIDEM [Concomitant]
     Active Substance: ZOLPIDEM\ZOLPIDEM TARTRATE
     Indication: DEPRESSION
     Dosage: 10 MILLIGRAM DAILY; AT BEDTIME
     Route: 065

REACTIONS (15)
  - Hypertensive crisis [Recovered/Resolved]
  - Erythema [Recovered/Resolved]
  - Asthmatic crisis [Recovered/Resolved]
  - Burning sensation [Recovered/Resolved]
  - Arthralgia [Recovered/Resolved]
  - Injection site pain [Not Recovered/Not Resolved]
  - Chills [Recovered/Resolved]
  - Back pain [Unknown]
  - Monoplegia [Recovered/Resolved]
  - Malaise [Recovered/Resolved]
  - Headache [Recovered/Resolved]
  - Injection site pruritus [Not Recovered/Not Resolved]
  - Injection site swelling [Not Recovered/Not Resolved]
  - Swelling [Recovered/Resolved]
  - Injection site erythema [Not Recovered/Not Resolved]

NARRATIVE: CASE EVENT DATE: 20150105
